FAERS Safety Report 7737551-8 (Version None)
Quarter: 2011Q3

REPORT INFORMATION
  Report Type: 
  Country: None (occurrence: None)
  Receive Date: 20110908
  Receipt Date: 20110831
  Transmission Date: 20111222
  Serious: Yes (Other)
  Sender: FDA-Public Use
  Company Number: CA-PFIZER INC-2011181180

PATIENT
  Sex: Male

DRUGS (7)
  1. LIPITOR [Concomitant]
     Indication: BLOOD CHOLESTEROL
     Dosage: 20 MG, 1X/DAY
  2. XALATAN [Suspect]
     Indication: GLAUCOMA
     Dosage: 1 GTT, 1X/DAY IN BOTH EYES
     Route: 047
  3. ASPIRIN [Concomitant]
     Indication: PAIN
     Dosage: 125 MG, 1X/DAY
  4. CARPINE [Concomitant]
     Indication: GLAUCOMA
     Dosage: 4X/DAY LEFT EYE AND 2X/DAY RIGHT EYE
     Route: 047
  5. AVAPRO [Concomitant]
     Indication: HYPERTENSION
     Dosage: 300 MG, 1X/DAY
  6. HYDROCHLOROTHIAZIDE [Concomitant]
     Indication: HYPERTENSION
     Dosage: 25 MG, 1X/DAY
  7. CARDIZEM [Concomitant]
     Indication: HYPERTENSION
     Dosage: 300 MG, 1X/DAY

REACTIONS (1)
  - CATARACT [None]
